FAERS Safety Report 5201315-X (Version None)
Quarter: 2007Q1

REPORT INFORMATION
  Report Type: 
  Country: None (occurrence: None)
  Receive Date: 20070108
  Receipt Date: 20070102
  Transmission Date: 20070707
  Serious: Yes (Life-Threatening, Other)
  Sender: FDA-Public Use
  Company Number: US-SHR-US-2006-037779

PATIENT
  Age: 35 Year
  Sex: Female
  Weight: 78.2 kg

DRUGS (2)
  1. ULTRAVIST 300 [Suspect]
     Dosage: 150 ML, 1 DOSE
     Route: 042
     Dates: start: 20061130, end: 20061130
  2. READI-CAT [Concomitant]
     Dosage: UNK, 2 DOSES
     Dates: start: 20061130, end: 20061130

REACTIONS (11)
  - ANAPHYLACTIC REACTION [None]
  - BUNDLE BRANCH BLOCK RIGHT [None]
  - DYSPEPSIA [None]
  - DYSPHAGIA [None]
  - DYSPNOEA [None]
  - ERYTHEMA [None]
  - FLUSHING [None]
  - HYPOTENSION [None]
  - SINUS TACHYCARDIA [None]
  - THROAT TIGHTNESS [None]
  - URTICARIA [None]
